FAERS Safety Report 8534350-4 (Version None)
Quarter: 2012Q3

REPORT INFORMATION
  Report Type: 
  Country: None (occurrence: None)
  Receive Date: 20120724
  Receipt Date: 20120709
  Transmission Date: 20120928
  Serious: Yes (Other)
  Sender: FDA-Public Use
  Company Number: JP-AMGEN-JPNSP2012044815

PATIENT
  Age: 85 Year
  Sex: Female
  Weight: 45 kg

DRUGS (8)
  1. ARGAMATE [Concomitant]
     Dosage: 25 MG, QD
     Route: 048
     Dates: start: 20101027
  2. DOXAZOSIN MESYLATE [Concomitant]
     Dosage: 2 MG, QD
     Route: 048
     Dates: start: 20091104
  3. ALFAROL [Concomitant]
     Dosage: 0.5 MG, QD
     Route: 048
     Dates: start: 20091104
  4. NORVASC [Concomitant]
     Dosage: 5 MG, QD
     Route: 048
     Dates: start: 20091104
  5. DEPAS [Concomitant]
     Dosage: 0.5 MG, BID
     Route: 048
     Dates: start: 20091104
  6. EPOETIN ALFA [Suspect]
     Indication: NEPHROGENIC ANAEMIA
     Dosage: 6000 IU, Q2WK
     Route: 058
     Dates: start: 20110707, end: 20110721
  7. LANSOPRAZOLE [Concomitant]
     Dosage: 30 MG, QD
     Route: 048
     Dates: start: 20100818
  8. CEREKINON [Concomitant]
     Dosage: 100 MG, TID
     Route: 048
     Dates: start: 20100818

REACTIONS (1)
  - HYPERTENSIVE ENCEPHALOPATHY [None]
